FAERS Safety Report 9986460 (Version 3)
Quarter: 2014Q2

REPORT INFORMATION
  Report Type: Spontaneous
  Country: US (occurrence: US)
  Receive Date: 20140307
  Receipt Date: 20140408
  Transmission Date: 20141212
  Serious: Yes (Other)
  Sender: FDA-Public Use
  Company Number: US-009507513-1403USA001306

PATIENT
  Sex: Female

DRUGS (1)
  1. DULERA [Suspect]
     Dosage: 4 PUFFS DAILY
     Route: 055
     Dates: start: 2013

REACTIONS (3)
  - Aphonia [Unknown]
  - Drug dose omission [Unknown]
  - Product quality issue [Unknown]
